FAERS Safety Report 6480241-2 (Version None)
Quarter: 2009Q4

REPORT INFORMATION
  Report Type: 
  Country: None (occurrence: None)
  Receive Date: 20091123
  Receipt Date: 20090810
  Transmission Date: 20100525
  Serious: No
  Sender: FDA-Public Use
  Company Number: 8050046

PATIENT
  Age: 62 Year
  Sex: Female
  Weight: 90.9 kg

DRUGS (7)
  1. CIMZIA [Suspect]
     Indication: CROHN'S DISEASE
     Dosage: 400 MG SC
     Route: 058
     Dates: start: 20090512
  2. SYNTHROID [Concomitant]
  3. NEXIUM [Concomitant]
  4. LISINOPRIL HYDROCHLORTHIAZID [Concomitant]
  5. BYSTOLIC [Concomitant]
  6. LIALDA [Concomitant]
  7. CELEBREX [Concomitant]

REACTIONS (2)
  - FATIGUE [None]
  - SWELLING [None]
